FAERS Safety Report 5473196-0 (Version None)
Quarter: 2007Q3

REPORT INFORMATION
  Report Type: 
  Country: None (occurrence: None)
  Receive Date: 20070927
  Receipt Date: 20070919
  Transmission Date: 20080115
  Serious: Yes (Hospitalization)
  Sender: FDA-Public Use
  Company Number: 2007-04269

PATIENT
  Age: 59 Year
  Sex: Male

DRUGS (2)
  1. FIORINAL [Suspect]
     Indication: CEREBRAL INFARCTION
     Dosage: 100 MG, DAILY X 4 YEARS, ORAL
     Route: 048
     Dates: start: 20030101
  2. HEPARIN SODIUM [Suspect]
     Indication: HAEMODIALYSIS
     Dosage: 25 U/KG/HR DURING HEMODIALYSIS, INTRAVENOUS
     Route: 042
     Dates: start: 19910101

REACTIONS (1)
  - MEDIASTINAL HAEMATOMA [None]
